FAERS Safety Report 6151943 (Version 3)
Quarter: 2013Q3

REPORT INFORMATION
  Report Type: Spontaneous
  Country: US (occurrence: US)
  Receive Date: 20061024
  Receipt Date: 20130711
  Transmission Date: 20140515
  Serious: Yes (Hospitalization, Other)
  Sender: FDA-Public Use
  Company Number: US-RB-2585-2006

PATIENT
  Sex: Female

DRUGS (3)
  1. SUBOXONE [Suspect]
     Indication: DRUG DEPENDENCE
     Route: 064
     Dates: start: 200512, end: 20060115
  2. SUBUTEX [Suspect]
     Indication: DRUG DEPENDENCE
     Route: 064
     Dates: start: 20060116, end: 200607
  3. NICOTINE [Suspect]
     Indication: TOBACCO USER
     Dosage: MOTHER SMOKED 1 PACK OF CIGARETTES A DAY
     Route: 064
     Dates: start: 200512, end: 200607

REACTIONS (3)
  - Foetal exposure during pregnancy [Recovered/Resolved]
  - Premature baby [Recovered/Resolved]
  - Sleep apnoea syndrome [Recovered/Resolved]
